FAERS Safety Report 10276728 (Version 1)
Quarter: 2014Q3

REPORT INFORMATION
  Report Type: Spontaneous
  Country: US (occurrence: None)
  Receive Date: 20140701
  Receipt Date: 20140701
  Transmission Date: 20150326
  Serious: Yes (Hospitalization)
  Sender: FDA-Public Use
  Company Number: None

PATIENT
  Age: 73 Year
  Sex: Male
  Weight: 98.6 kg

DRUGS (8)
  1. RIVAROXABAN 20 MG JANSSEN [Suspect]
     Active Substance: RIVAROXABAN
     Indication: ATRIAL FIBRILLATION
     Route: 048
     Dates: start: 20140317, end: 20140627
  2. MULTIVITAMIN [Concomitant]
     Active Substance: VITAMINS
  3. FERROUS SULFATE [Concomitant]
     Active Substance: FERROUS SULFATE\FERROUS SULFATE, DRIED
  4. ASPIRIN. [Concomitant]
     Active Substance: ASPIRIN
  5. ZESTRIL [Concomitant]
     Active Substance: LISINOPRIL
  6. MAXZIDE [Concomitant]
     Active Substance: HYDROCHLOROTHIAZIDE\TRIAMTERENE
  7. METOPROLOL TART [Concomitant]
  8. LIPITOR [Concomitant]
     Active Substance: ATORVASTATIN CALCIUM

REACTIONS (1)
  - Lower gastrointestinal haemorrhage [None]

NARRATIVE: CASE EVENT DATE: 20140627
